FAERS Safety Report 8173771-9 (Version None)
Quarter: 2012Q1

REPORT INFORMATION
  Report Type: 
  Country: None (occurrence: None)
  Receive Date: 20120224
  Receipt Date: 20120215
  Transmission Date: 20120608
  Serious: Yes (Other)
  Sender: FDA-Public Use
  Company Number: 216567

PATIENT
  Sex: Female

DRUGS (1)
  1. INNOHEP [Suspect]
     Indication: PRODUCT USED FOR UNKNOWN INDICATION
     Dosage: PROPHYLACTIC DOSE (75 IU/KG)

REACTIONS (2)
  - PREMATURE SEPARATION OF PLACENTA [None]
  - MATERNAL EXPOSURE DURING PREGNANCY [None]
